FAERS Safety Report 13682071 (Version 1)
Quarter: 2017Q2

REPORT INFORMATION
  Report Type: Spontaneous
  Country: US (occurrence: US)
  Receive Date: 20170623
  Receipt Date: 20170623
  Transmission Date: 20170830
  Serious: Yes (Other)
  Sender: FDA-Public Use
  Company Number: US-ASTRAZENECA-2015SE87864

PATIENT
  Sex: Male
  Weight: 68 kg

DRUGS (1)
  1. BYDUREON [Suspect]
     Active Substance: EXENATIDE
     Indication: TYPE 2 DIABETES MELLITUS
     Dosage: 2.0MG UNKNOWN
     Route: 058

REACTIONS (4)
  - Injection site pain [Unknown]
  - Device malfunction [Unknown]
  - Cataract [Unknown]
  - Injection site nodule [Unknown]
